FAERS Safety Report 5179572-8 (Version None)
Quarter: 2006Q4

REPORT INFORMATION
  Report Type: 
  Country: None (occurrence: None)
  Receive Date: 20061219
  Receipt Date: 20061213
  Transmission Date: 20070319
  Serious: Yes (Hospitalization)
  Sender: FDA-Public Use
  Company Number: FR-ROXANE LABORATORIES, INC-2006-DE-06681GD

PATIENT
  Sex: Female

DRUGS (1)
  1. ACETAMINOPHEN AND CODEINE PHOSPHATE [Suspect]
     Indication: ANALGESIC EFFECT

REACTIONS (1)
  - SPHINCTER OF ODDI DYSFUNCTION [None]
